FAERS Safety Report 9236013 (Version 2)
Quarter: 2013Q2

REPORT INFORMATION
  Report Type: Spontaneous
  Country: IT (occurrence: IT)
  Receive Date: 20130417
  Receipt Date: 20130621
  Transmission Date: 20140414
  Serious: Yes (Disabling)
  Sender: FDA-Public Use
  Company Number: IT-MERCK-1304ITA004492

PATIENT
  Age: 45 Year
  Sex: Male

DRUGS (1)
  1. PROPECIA [Suspect]

REACTIONS (16)
  - Impaired work ability [Unknown]
  - Prostatitis [Unknown]
  - Testicular disorder [Unknown]
  - Asthenia [Unknown]
  - Muscle twitching [Unknown]
  - Dyskinesia [Unknown]
  - Sleep disorder [Unknown]
  - Arthralgia [Unknown]
  - Amnesia [Unknown]
  - Disturbance in attention [Unknown]
  - Mood altered [Unknown]
  - Erectile dysfunction [Unknown]
  - Loss of libido [Unknown]
  - Anxiety [Unknown]
  - Panic disorder [Unknown]
  - Depression [Unknown]
